FAERS Safety Report 5578853-3 (Version None)
Quarter: 2007Q4

REPORT INFORMATION
  Report Type: 
  Country: None (occurrence: None)
  Receive Date: 20071228
  Receipt Date: 20071218
  Transmission Date: 20080405
  Serious: Yes (Death, Hospitalization)
  Sender: FDA-Public Use
  Company Number: CLOF-1000003

PATIENT
  Age: 24 Year
  Sex: Male
  Weight: 68.8 kg

DRUGS (2)
  1. CLOLAR (CLOFARABINE) SOLUTION FOR INFUSION [Suspect]
     Indication: ACUTE LEUKAEMIA
     Dosage: 40 MG/M2, QDX5, INTRAVENOUS
     Route: 042
     Dates: start: 20071113, end: 20071117
  2. CYTARABINE [Suspect]
     Indication: ACUTE LYMPHOCYTIC LEUKAEMIA
     Dosage: 1 G/M2, QDX5, INTRAVENOUS
     Route: 042
     Dates: start: 20071113, end: 20071117

REACTIONS (13)
  - ASPIRATION JOINT ABNORMAL [None]
  - BLOOD LACTIC ACID INCREASED [None]
  - CAECITIS [None]
  - CULTURE POSITIVE [None]
  - ENTEROBACTER INFECTION [None]
  - ENTEROCOLITIS INFECTIOUS [None]
  - FUNGAL INFECTION [None]
  - HYPOTENSION [None]
  - JOINT SWELLING [None]
  - PSEUDOMONAS INFECTION [None]
  - SEPSIS [None]
  - TACHYPNOEA [None]
  - WHITE BLOOD CELL COUNT DECREASED [None]
